FAERS Safety Report 6837209 (Version 22)
Quarter: 2014Q1

REPORT INFORMATION
  Report Type: Spontaneous
  Country: US (occurrence: US)
  Receive Date: 20081208
  Receipt Date: 20140204
  Transmission Date: 20141002
  Serious: Yes (Death, Hospitalization, Other)
  Sender: FDA-Public Use
  Company Number: PHEH2008US10678

PATIENT
  Sex: Male

DRUGS (10)
  1. ZOMETA [Suspect]
     Indication: PLASMA CELL MYELOMA
     Route: 042
  2. COUMADIN [Suspect]
  3. SERTRALINE [Concomitant]
     Dosage: 100 MG, QD
     Route: 048
  4. REVLIMID [Concomitant]
     Dosage: 15 MG, DAILY FOR 21 DAYS
     Route: 048
  5. PROPRANOLOL [Concomitant]
     Dosage: 10 MG, QD
     Route: 048
  6. ATROPINE [Concomitant]
     Route: 048
  7. PROCHLORPERAZINE MALEATE [Concomitant]
     Dosage: 10 MG, PRN
     Route: 048
  8. PRILOSEC [Concomitant]
  9. OXYCODONE [Concomitant]
  10. LOVENOX [Concomitant]

REACTIONS (109)
  - Death [Fatal]
  - Hyponatraemia [Unknown]
  - Aplastic anaemia [Unknown]
  - Metabolic encephalopathy [Unknown]
  - Barrett^s oesophagus [Unknown]
  - Vitamin B complex deficiency [Unknown]
  - Hypokalaemia [Unknown]
  - Thrombocytopenia [Unknown]
  - Renal failure [Unknown]
  - Coagulopathy [Unknown]
  - Rectal haemorrhage [Unknown]
  - Haematochezia [Unknown]
  - Osteonecrosis of jaw [Unknown]
  - Pain [Unknown]
  - Mastication disorder [Unknown]
  - Discomfort [Unknown]
  - Exposed bone in jaw [Unknown]
  - Deformity [Unknown]
  - Injury [Unknown]
  - Physical disability [Unknown]
  - Emotional distress [Unknown]
  - Anxiety [Unknown]
  - Life expectancy shortened [Unknown]
  - Activities of daily living impaired [Unknown]
  - Quality of life decreased [Unknown]
  - Anhedonia [Unknown]
  - Gingivitis [Unknown]
  - Gingival bleeding [Unknown]
  - Dental caries [Recovered/Resolved]
  - Overdose [Unknown]
  - Mental status changes [Unknown]
  - Deep vein thrombosis [Unknown]
  - Cerebral atrophy [Unknown]
  - Spinal osteoarthritis [Unknown]
  - Cerebral disorder [Unknown]
  - Metastases to bone [Unknown]
  - Pericardial effusion [Unknown]
  - Gastrooesophageal reflux disease [Unknown]
  - Goitre [Unknown]
  - Renal cyst [Unknown]
  - Clavicle fracture [Recovering/Resolving]
  - Ecchymosis [Unknown]
  - Large intestine polyp [Unknown]
  - Failure to thrive [Unknown]
  - Haemorrhoids [Unknown]
  - Nasal turbinate hypertrophy [Unknown]
  - Cardiac failure congestive [Unknown]
  - Pulmonary mass [Unknown]
  - Fall [Unknown]
  - Dilatation atrial [Unknown]
  - Herpes zoster [Recovered/Resolved]
  - Conjunctival haemorrhage [Recovered/Resolved]
  - Mitral valve calcification [Unknown]
  - Pulmonary embolism [Unknown]
  - Osteoma [Unknown]
  - Rotator cuff syndrome [Unknown]
  - Inguinal hernia [Unknown]
  - Dysphagia [Unknown]
  - Urinary incontinence [Unknown]
  - Decreased appetite [Unknown]
  - Confusional state [Unknown]
  - Asthenia [Unknown]
  - Weight decreased [Unknown]
  - Depression [Unknown]
  - Colon cancer [Unknown]
  - Insomnia [Unknown]
  - Back pain [Unknown]
  - Dyspnoea [Recovered/Resolved]
  - Blood pressure increased [Unknown]
  - Oedema peripheral [Unknown]
  - Dyspepsia [Unknown]
  - Constipation [Unknown]
  - Oesophagitis [Unknown]
  - Pyrexia [Recovered/Resolved]
  - Cough [Unknown]
  - Mucosal inflammation [Unknown]
  - Bronchitis [Recovering/Resolving]
  - Gastritis [Unknown]
  - Blister [Unknown]
  - Pruritus [Unknown]
  - Abdominal pain upper [Unknown]
  - Pain in extremity [Recovered/Resolved]
  - Upper respiratory tract infection [Recovered/Resolved]
  - Hypertension [Unknown]
  - Diverticulum intestinal [Unknown]
  - Basal cell carcinoma [Unknown]
  - Second primary malignancy [Unknown]
  - Actinic keratosis [Unknown]
  - Gastrointestinal haemorrhage [Unknown]
  - Dizziness [Unknown]
  - Gastrointestinal carcinoma [Unknown]
  - Gait disturbance [Unknown]
  - Osteoarthritis [Unknown]
  - Varices oesophageal [Unknown]
  - Diastolic dysfunction [Unknown]
  - Renal mass [Unknown]
  - Pulmonary artery thrombosis [Unknown]
  - Presyncope [Unknown]
  - Intestinal ischaemia [Unknown]
  - Bone lesion [Unknown]
  - Neuropathy peripheral [Unknown]
  - Contusion [Unknown]
  - Hypercalcaemia [Unknown]
  - Spinal pain [Unknown]
  - Nausea [Unknown]
  - Malaise [Unknown]
  - Cataract [Unknown]
  - Vision blurred [Unknown]
  - Joint swelling [Unknown]
